FAERS Safety Report 12403734 (Version 2)
Quarter: 2016Q3

REPORT INFORMATION
  Report Type: Spontaneous
  Country: BR (occurrence: BR)
  Receive Date: 20160525
  Receipt Date: 20160824
  Transmission Date: 20161109
  Serious: Yes (Other)
  Sender: FDA-Public Use
  Company Number: BR-ASTRAZENECA-2016SE53955

PATIENT
  Age: 78 Year
  Sex: Male

DRUGS (2)
  1. ATACAND HCT [Suspect]
     Active Substance: CANDESARTAN CILEXETIL\HYDROCHLOROTHIAZIDE
     Indication: BLOOD PRESSURE ABNORMAL
     Dosage: 8/12.5 MG
     Route: 048
  2. ATACAND HCT [Suspect]
     Active Substance: CANDESARTAN CILEXETIL\HYDROCHLOROTHIAZIDE
     Indication: BLOOD PRESSURE ABNORMAL
     Dosage: 16/12.5 MG
     Route: 048

REACTIONS (2)
  - Blood pressure fluctuation [Not Recovered/Not Resolved]
  - Pain [Unknown]
